FAERS Safety Report 20869890 (Version 5)
Quarter: 2023Q2

REPORT INFORMATION
  Report Type: Report from Study
  Country: CN (occurrence: CN)
  Receive Date: 20220525
  Receipt Date: 20230509
  Transmission Date: 20230721
  Serious: Yes (Hospitalization)
  Sender: FDA-Public Use
  Company Number: CN-NOVARTISPH-NVSC2022CN116825

PATIENT
  Age: 29 Year
  Sex: Male
  Weight: 71 kg

DRUGS (2)
  1. COSENTYX [Suspect]
     Active Substance: SECUKINUMAB
     Indication: Psoriasis
     Dosage: 300 MG
     Route: 058
     Dates: start: 20220107, end: 20220209
  2. COSENTYX [Suspect]
     Active Substance: SECUKINUMAB
     Dosage: UNK
     Route: 065
     Dates: end: 20221102

REACTIONS (11)
  - Nasopharyngitis [Unknown]
  - Guillain-Barre syndrome [Recovering/Resolving]
  - Muscular weakness [Recovering/Resolving]
  - Hypoaesthesia [Unknown]
  - Fatigue [Unknown]
  - Dizziness [Recovered/Resolved]
  - Axonal and demyelinating polyneuropathy [Recovering/Resolving]
  - Peripheral nerve lesion [Recovering/Resolving]
  - Gait disturbance [Recovering/Resolving]
  - Pain [Recovering/Resolving]
  - Rhinorrhoea [Unknown]

NARRATIVE: CASE EVENT DATE: 20220207
